FAERS Safety Report 24682828 (Version 1)
Quarter: 2024Q4

REPORT INFORMATION
  Report Type: Spontaneous
  Country: US (occurrence: US)
  Receive Date: 20241201
  Receipt Date: 20241201
  Transmission Date: 20250114
  Serious: Yes (Hospitalization, Other)
  Sender: AUROBINDO
  Company Number: US-MLMSERVICE-20241112-PI253996-00270-1

PATIENT
  Age: 65 Year
  Sex: Female

DRUGS (2)
  1. METHYLPREDNISOLONE SODIUM SUCCINATE [Suspect]
     Active Substance: METHYLPREDNISOLONE SODIUM SUCCINATE
     Indication: Myelin oligodendrocyte glycoprotein antibody-associated disease
     Dosage: 250 MILLIGRAM, ONCE A DAY
     Route: 042
  2. PREDNISONE [Suspect]
     Active Substance: PREDNISONE
     Indication: Myelin oligodendrocyte glycoprotein antibody-associated disease
     Dosage: 1 MILLIGRAM/KILOGRAM
     Route: 048

REACTIONS (3)
  - Sinus node dysfunction [Recovered/Resolved]
  - Sinus bradycardia [Recovered/Resolved]
  - Chronotropic incompetence [Unknown]
